FAERS Safety Report 9103281 (Version 5)
Quarter: 2013Q2

REPORT INFORMATION
  Report Type: Spontaneous
  Country: US (occurrence: US)
  Receive Date: 20130219
  Receipt Date: 20130627
  Transmission Date: 20140414
  Serious: Yes (Other)
  Sender: FDA-Public Use
  Company Number: US-009507513-1302USA000422

PATIENT
  Age: 21 Year
  Sex: Female

DRUGS (2)
  1. IMPLANON [Suspect]
     Indication: CONTRACEPTION
     Dosage: UNK
     Route: 050
     Dates: start: 20081111
  2. ALBUTEROL [Concomitant]

REACTIONS (38)
  - Pancreatic atrophy [Unknown]
  - Monoplegia [Unknown]
  - Feeling abnormal [Unknown]
  - Swelling [Recovered/Resolved]
  - Infection [Unknown]
  - Infertility female [Unknown]
  - Vaginal haemorrhage [Unknown]
  - Uterine haemorrhage [Unknown]
  - Incorrect drug administration duration [Recovered/Resolved]
  - Fluid retention [Unknown]
  - Haemorrhage [Unknown]
  - Abdominal pain lower [Unknown]
  - Mood swings [Unknown]
  - Acne [Unknown]
  - Arthralgia [Not Recovered/Not Resolved]
  - Back pain [Unknown]
  - Dizziness [Unknown]
  - Confusional state [Unknown]
  - Decreased appetite [Unknown]
  - Fatigue [Unknown]
  - Nervousness [Unknown]
  - Anxiety [Unknown]
  - Urinary incontinence [Not Recovered/Not Resolved]
  - Weight increased [Unknown]
  - Euphoric mood [Unknown]
  - Breast pain [Unknown]
  - Loss of libido [Unknown]
  - Cyst [Unknown]
  - Panic attack [Unknown]
  - Enuresis [Unknown]
  - Vaginal infection [Unknown]
  - Breast pain [Unknown]
  - Menstrual disorder [Unknown]
  - Metrorrhagia [Unknown]
  - Galactorrhoea [Not Recovered/Not Resolved]
  - Insomnia [Recovered/Resolved]
  - Asthenia [Unknown]
  - Vomiting [Unknown]
